FAERS Safety Report 16395746 (Version 1)
Quarter: 2019Q2

REPORT INFORMATION
  Report Type: Spontaneous
  Country: IN (occurrence: IN)
  Receive Date: 20190605
  Receipt Date: 20190605
  Transmission Date: 20190711
  Serious: Yes (Hospitalization, Other)
  Sender: FDA-Public Use
  Company Number: IN-ACELLA PHARMACEUTICALS, LLC-2067822

PATIENT
  Age: 34 Year
  Sex: Male

DRUGS (3)
  1. LEVETIRACETAM. [Concomitant]
     Active Substance: LEVETIRACETAM
     Route: 065
  2. PHENYTOIN SODIUM. [Suspect]
     Active Substance: PHENYTOIN SODIUM
     Indication: SEIZURE
  3. CLOBAZAM. [Concomitant]
     Active Substance: CLOBAZAM
     Route: 065

REACTIONS (11)
  - Body temperature increased [Recovering/Resolving]
  - Splenomegaly [Recovering/Resolving]
  - Dysuria [Recovering/Resolving]
  - Mucosal ulceration [Recovering/Resolving]
  - Rash [Recovering/Resolving]
  - Chills [Recovering/Resolving]
  - Pyrexia [Recovering/Resolving]
  - Rash maculo-papular [Recovering/Resolving]
  - Haemophagocytic lymphohistiocytosis [Recovering/Resolving]
  - Anaemia [Recovering/Resolving]
  - Bicytopenia [Recovering/Resolving]
